FAERS Safety Report 10261861 (Version 1)
Quarter: 2014Q2

REPORT INFORMATION
  Report Type: Report from Study
  Country: TN (occurrence: TN)
  Receive Date: 20140626
  Receipt Date: 20140626
  Transmission Date: 20141212
  Serious: Yes (Death)
  Sender: FDA-Public Use
  Company Number: TN-SA-2014SA081035

PATIENT
  Age: 78 Year
  Sex: Female

DRUGS (7)
  1. PLAVIX [Suspect]
     Indication: MYOCARDIAL INFARCTION
     Dosage: DOSE REPORTED AS 75/D (UNITS NOT PROVIDED)
     Route: 048
     Dates: start: 20131029, end: 201403
  2. CAPTOPRIL [Concomitant]
     Route: 048
  3. DAONIL [Concomitant]
     Route: 048
  4. VASCOR [Concomitant]
     Route: 048
  5. GLUCOPHAGE [Concomitant]
     Route: 048
  6. MOPRAL [Concomitant]
     Route: 048
  7. TRIB [Concomitant]
     Route: 048

REACTIONS (1)
  - Condition aggravated [Fatal]
